FAERS Safety Report 19212861 (Version 1)
Quarter: 2021Q2

REPORT INFORMATION
  Report Type: Spontaneous
  Country: CN (occurrence: CN)
  Receive Date: 20210504
  Receipt Date: 20210504
  Transmission Date: 20210717
  Serious: Yes (Other)
  Sender: FDA-Public Use
  Company Number: CN-BAYER-2021-132244

PATIENT
  Age: 46 Year
  Sex: Male

DRUGS (12)
  1. BIODIPIN [Concomitant]
     Indication: HEPATIC CANCER RECURRENT
     Dosage: 8 ML, ONCE, TRANSCATHETER ARTERIAL CHEMOEMBOLISATION
     Dates: start: 20201016, end: 20201016
  2. BIODIPIN [Concomitant]
     Indication: HEPATIC CANCER RECURRENT
     Dosage: 4 ML, ONCE, TRANSCATHETER ARTERIAL CHEMOEMBOLISATION
     Dates: start: 20190719, end: 20190719
  3. BIODIPIN [Concomitant]
     Indication: HEPATIC CANCER RECURRENT
     Dosage: 4 ML, TRANSCATHETER ARTERIAL CHEMOEMBOLISATION
     Dates: start: 20191111, end: 20191111
  4. EPIRUBICIN [Concomitant]
     Active Substance: EPIRUBICIN
     Dosage: 30 MG, ONCE, TRANSCATHETER ARTERIAL CHEMOEMBOLISATION
     Dates: start: 20191111, end: 20191111
  5. NEXAVAR [Suspect]
     Active Substance: SORAFENIB
     Indication: HEPATIC CANCER RECURRENT
     Dosage: UNK
     Dates: start: 201907
  6. STIVARGA [Suspect]
     Active Substance: REGORAFENIB
     Dosage: UNK
     Dates: start: 202003
  7. ENTECAVIR. [Concomitant]
     Active Substance: ENTECAVIR
     Indication: HEPATITIS B
     Dosage: UNK
     Dates: start: 201907
  8. EPIRUBICIN [Concomitant]
     Active Substance: EPIRUBICIN
     Dosage: 50 MG, ONCE, TRANSCATHETER ARTERIAL CHEMOEMBOLISATION
     Dates: start: 20201016, end: 20201016
  9. OXALIPLATIN. [Concomitant]
     Active Substance: OXALIPLATIN
     Indication: HEPATIC CANCER RECURRENT
     Dosage: 50 MG, ONCE, TRANSCATHETER ARTERIAL CHEMOEMBOLISATION
     Dates: start: 20190719, end: 20190719
  10. EPIRUBICIN [Concomitant]
     Active Substance: EPIRUBICIN
     Dosage: 50 MG, ONCE, TRANSCATHETER ARTERIAL CHEMOEMBOLISATION
     Dates: start: 20200327, end: 20200327
  11. CAMRELIZUMAB [Concomitant]
     Active Substance: CAMRELIZUMAB
     Dosage: 200 MG, Q3WK
     Route: 042
     Dates: start: 202010
  12. BIODIPIN [Concomitant]
     Indication: HEPATIC CANCER RECURRENT
     Dosage: 6 ML, ONCE, TRANSCATHETER ARTERIAL CHEMOEMBOLISATION
     Dates: start: 20200327, end: 20200327

REACTIONS (4)
  - Hepatocellular carcinoma [None]
  - Cancer pain [None]
  - Metastases to bone [None]
  - Metastases to lung [None]

NARRATIVE: CASE EVENT DATE: 20191108
